FAERS Safety Report 6112326-4 (Version None)
Quarter: 2009Q1

REPORT INFORMATION
  Report Type: 
  Country: None (occurrence: None)
  Receive Date: 20090311
  Receipt Date: 20090311
  Transmission Date: 20090719
  Serious: Yes (Other)
  Sender: FDA-Public Use
  Company Number: None

PATIENT
  Age: 46 Year
  Sex: Male
  Weight: 136.5327 kg

DRUGS (1)
  1. PRANACTIN CITRIC [Suspect]
     Indication: HELICOBACTER INFECTION
     Dosage: 84 MG ONCE PO
     Route: 048
     Dates: start: 20090210

REACTIONS (2)
  - RASH MORBILLIFORM [None]
  - RASH PRURITIC [None]
